FAERS Safety Report 6725160-9 (Version None)
Quarter: 2010Q2

REPORT INFORMATION
  Report Type: 
  Country: None (occurrence: None)
  Receive Date: 20100514
  Receipt Date: 20100506
  Transmission Date: 20101027
  Serious: Yes (Death, Other)
  Sender: FDA-Public Use
  Company Number: US-CELGENEUS-163-20785-10050641

PATIENT

DRUGS (5)
  1. THALOMID [Suspect]
     Route: 048
  2. THALOMID [Suspect]
     Route: 048
  3. THALOMID [Suspect]
     Route: 048
  4. FLUDARABINE PHOSPHATE [Suspect]
     Route: 065
  5. COUMADIN [Concomitant]
     Dosage: 1 OR 2 MG
     Route: 065

REACTIONS (7)
  - ANAEMIA [None]
  - CHRONIC LYMPHOCYTIC LEUKAEMIA [None]
  - DRUG INTOLERANCE [None]
  - EMBOLISM VENOUS [None]
  - FATIGUE [None]
  - HEPATITIS C [None]
  - THROMBOCYTOPENIA [None]
